FAERS Safety Report 15959464 (Version 1)
Quarter: 2019Q1

REPORT INFORMATION
  Report Type: Spontaneous
  Country: NL (occurrence: NL)
  Receive Date: 20190214
  Receipt Date: 20190214
  Transmission Date: 20190417
  Serious: Yes (Other)
  Sender: FDA-Public Use
  Company Number: NL-EMCURE PHARMACEUTICALS LTD-2019-EPL-0074

PATIENT

DRUGS (1)
  1. TRANEXAMIC ACID. [Suspect]
     Active Substance: TRANEXAMIC ACID

REACTIONS (2)
  - Adverse event [Unknown]
  - Wrong product administered [Unknown]
